FAERS Safety Report 15403637 (Version 2)
Quarter: 2019Q2

REPORT INFORMATION
  Report Type: Spontaneous
  Country: PT (occurrence: PT)
  Receive Date: 20180919
  Receipt Date: 20190503
  Transmission Date: 20190711
  Serious: Yes (Other)
  Sender: FDA-Public Use
  Company Number: PT-MYLANLABS-2018M1021549

PATIENT
  Age: 77 Year
  Sex: Male

DRUGS (5)
  1. BISOPROLOL [Suspect]
     Active Substance: BISOPROLOL
     Indication: PRODUCT USED FOR UNKNOWN INDICATION
     Dosage: UNK (FROM MONDAY TO FRIDAY)
  2. AMIODARONE [Suspect]
     Active Substance: AMIODARONE
     Dosage: REDUCTION OF AMIODARONE TO ALTERNATE DAYS AND TO REPEAT THE ASSAY AFTER ONE WEEK.
  3. RIVAROXABAN [Suspect]
     Active Substance: RIVAROXABAN
     Indication: PRODUCT USED FOR UNKNOWN INDICATION
     Dosage: MONDAY TO FRIDAY
  4. AMIODARONE [Suspect]
     Active Substance: AMIODARONE
     Indication: PRODUCT USED FOR UNKNOWN INDICATION
     Dosage: (MONDAY TO FRIDAY)
  5. AMIODARONE [Suspect]
     Active Substance: AMIODARONE
     Dosage: UNK, ALTERNATE DAY THEN REPEAT THE DOSING AFTER ONE WEEK

REACTIONS (1)
  - Hypothyroidism [Unknown]
